FAERS Safety Report 8826865 (Version 5)
Quarter: 2013Q2

REPORT INFORMATION
  Report Type: Spontaneous
  Country: US (occurrence: US)
  Receive Date: 20121005
  Receipt Date: 20130507
  Transmission Date: 20140414
  Serious: Yes (Hospitalization, Other)
  Sender: FDA-Public Use
  Company Number: US-ALEXION PHARMACEUTICALS INC.-A201201879

PATIENT
  Age: 79 Year
  Sex: Female
  Weight: 66.6 kg

DRUGS (14)
  1. SOLIRIS 300MG [Suspect]
     Indication: PAROXYSMAL NOCTURNAL HAEMOGLOBINURIA
     Dosage: X4W600 MG, QW
     Route: 042
     Dates: start: 20100326
  2. SOLIRIS 300MG [Suspect]
     Dosage: 900 MG, Q2W
     Route: 042
     Dates: start: 20100423
  3. COUMADIN [Suspect]
     Indication: DEEP VEIN THROMBOSIS
     Dosage: 5 MG, QD
     Dates: start: 201209, end: 20121105
  4. ACYCLOVIR [Concomitant]
     Dosage: 400 MG, BID
     Route: 048
  5. FLUCONAZOLE [Concomitant]
     Dosage: 200 MG, QD
     Route: 048
  6. LACTULOSE [Concomitant]
     Indication: CONSTIPATION
     Dosage: 30 MG, BID
     Route: 048
  7. NEXIUM [Concomitant]
     Dosage: 1 DF, BID X 4 WEEKS
     Route: 048
  8. NEXIUM [Concomitant]
     Dosage: 1 DF, QD
     Route: 048
  9. NITROFURANTOIN [Concomitant]
     Indication: URINARY TRACT INFECTION
     Dosage: 1 DF, QID
     Route: 048
  10. SENNA [Concomitant]
     Indication: CONSTIPATION
     Dosage: 2 DF, BID
     Route: 048
  11. BACTRIM [Concomitant]
     Dosage: MONDAY, WEDNESDAY, FRIDAY
  12. TYLENOL [Concomitant]
     Dosage: 325 MG
     Route: 048
  13. LOVENOX [Concomitant]
     Dosage: 60 MG, BID
  14. PENTAMIDINE [Concomitant]
     Dosage: UNK, QMONTH

REACTIONS (7)
  - Deep vein thrombosis [Recovered/Resolved with Sequelae]
  - Adenocarcinoma of colon [Not Recovered/Not Resolved]
  - Diverticulum intestinal [Not Recovered/Not Resolved]
  - Large intestine polyp [Not Recovered/Not Resolved]
  - Gastrointestinal haemorrhage [Recovered/Resolved]
  - Anaemia [Recovered/Resolved]
  - Haemorrhoids [Not Recovered/Not Resolved]
